FAERS Safety Report 22632354 (Version 1)
Quarter: 2023Q2

REPORT INFORMATION
  Report Type: Spontaneous
  Country: US (occurrence: US)
  Receive Date: 20230623
  Receipt Date: 20230623
  Transmission Date: 20230722
  Serious: No
  Sender: FDA-Public Use
  Company Number: US-SA-SAC20230622000734

PATIENT
  Age: 19 Year
  Sex: Female

DRUGS (4)
  1. DUPIXENT [Suspect]
     Active Substance: DUPILUMAB
     Indication: Dermatitis allergic
     Dosage: 1 DF, QOW
     Route: 058
     Dates: start: 20201228
  2. HYDROCORTISONE [Concomitant]
     Active Substance: HYDROCORTISONE
  3. EUCRISA [Concomitant]
     Active Substance: CRISABOROLE
  4. TRIAMCINOLONE ACETONIDE [Concomitant]
     Active Substance: TRIAMCINOLONE ACETONIDE

REACTIONS (2)
  - Adverse drug reaction [Unknown]
  - Therapeutic response unexpected [Unknown]
